FAERS Safety Report 7642486 (Version 5)
Quarter: 2014Q1

REPORT INFORMATION
  Report Type: Spontaneous
  Country: US (occurrence: US)
  Receive Date: 20101027
  Receipt Date: 20140206
  Transmission Date: 20141002
  Serious: Yes (Hospitalization)
  Sender: FDA-Public Use
  Company Number: US-BAYER-201037913NA

PATIENT
  Age: 28 Year
  Sex: Female
  Weight: 58.96 kg

DRUGS (10)
  1. YAZ [Suspect]
     Indication: MENSTRUAL CYCLE MANAGEMENT
     Dosage: 1 TABLET/DAY, QD
     Route: 048
     Dates: start: 200805, end: 201005
  2. YAZ [Suspect]
     Indication: CONTRACEPTION
  3. YASMIN [Suspect]
     Route: 048
     Dates: start: 200805
  4. IRON [Concomitant]
     Indication: PRODUCT USED FOR UNKNOWN INDICATION
     Dosage: UNK
  5. CALCIUM CARBONATE [Concomitant]
     Indication: ABDOMINAL DISTENSION
  6. NEXIUM [Concomitant]
     Indication: CHEST PAIN
  7. NEXIUM [Concomitant]
     Indication: ABDOMINAL PAIN UPPER
  8. PARACETAMOL [Concomitant]
     Indication: PAIN
  9. ADVIL [Concomitant]
     Indication: PAIN
  10. TYLENOL 1 [Concomitant]
     Indication: PAIN

REACTIONS (5)
  - Cholelithiasis [None]
  - Cholecystitis chronic [Unknown]
  - Bile duct stone [None]
  - Abdominal pain upper [None]
  - Abdominal pain upper [None]
